FAERS Safety Report 8513811-8 (Version None)
Quarter: 2012Q2

REPORT INFORMATION
  Report Type: 
  Country: None (occurrence: None)
  Receive Date: 20120406
  Receipt Date: 20100218
  Transmission Date: 20120825
  Serious: Yes (Hospitalization)
  Sender: FDA-Public Use
  Company Number: PHEH2009US16291

PATIENT
  Sex: Male

DRUGS (14)
  1. LIPID MODIFYING AGENTS (NO INGREDIENTS/SUBSTANCES) [Concomitant]
  2. AZMACORT [Concomitant]
  3. SYNTHROID [Concomitant]
  4. ZOCOR [Concomitant]
  5. INSULIN [Concomitant]
  6. LEXAPRO [Concomitant]
  7. NORVASC [Concomitant]
  8. PLAVIX [Concomitant]
  9. TASIGNA [Suspect]
     Indication: CHRONIC MYELOID LEUKAEMIA
     Dosage: 400 MG, BID, ORAL
     Route: 048
  10. NEXIUM (ESOMEPRACOLE MAGNESIUM) [Concomitant]
  11. VITAMIN B12 [Concomitant]
  12. FLOMAX [Concomitant]
  13. LOPRESSOR [Concomitant]
  14. IRON [Concomitant]

REACTIONS (4)
  - CHRONIC MYELOID LEUKAEMIA [None]
  - BLOOD GLUCOSE INCREASED [None]
  - ANGINA PECTORIS [None]
  - DYSPNOEA [None]
